FAERS Safety Report 5127012-7 (Version None)
Quarter: 2006Q4

REPORT INFORMATION
  Report Type: 
  Country: None (occurrence: None)
  Receive Date: 20061013
  Receipt Date: 20060913
  Transmission Date: 20070319
  Serious: Yes (Life-Threatening, Hospitalization)
  Sender: FDA-Public Use
  Company Number: JP-JPN-A200603661

PATIENT
  Age: 73 Year
  Sex: Male
  Weight: 56 kg

DRUGS (9)
  1. ZANTAC [Suspect]
     Indication: UPPER RESPIRATORY TRACT INFLAMMATION
     Dosage: 75MG TWICE PER DAY
     Route: 048
     Dates: start: 20060802, end: 20060805
  2. FLOMOX [Suspect]
     Indication: UPPER RESPIRATORY TRACT INFLAMMATION
     Dosage: 100MG THREE TIMES PER DAY
     Route: 048
     Dates: start: 20060804, end: 20060805
  3. THREENOFEN [Suspect]
     Indication: UPPER RESPIRATORY TRACT INFLAMMATION
     Dosage: 60MG THREE TIMES PER DAY
     Route: 048
     Dates: start: 20060804, end: 20060805
  4. BRUFEN [Concomitant]
     Indication: UPPER RESPIRATORY TRACT INFECTION
     Route: 048
     Dates: start: 20060801, end: 20060803
  5. TARIVID [Concomitant]
     Indication: UPPER RESPIRATORY TRACT INFECTION
     Route: 048
     Dates: start: 20060801, end: 20060803
  6. TRANEXAMIC ACID [Concomitant]
     Indication: UPPER RESPIRATORY TRACT INFECTION
     Route: 048
     Dates: start: 20060801, end: 20060801
  7. POVIDONE IODINE GARGLE [Concomitant]
     Dates: start: 20060804
  8. ROCEPHIN [Concomitant]
     Indication: UPPER RESPIRATORY TRACT INFECTION
     Route: 042
     Dates: start: 20060804, end: 20060804
  9. ISODINE GARGLE [Concomitant]
     Indication: UPPER RESPIRATORY TRACT INFECTION
     Route: 002
     Dates: start: 20060804

REACTIONS (21)
  - BLISTER [None]
  - CONJUNCTIVAL HYPERAEMIA [None]
  - DIARRHOEA [None]
  - ERYTHEMA [None]
  - EYE DISCHARGE [None]
  - ILL-DEFINED DISORDER [None]
  - LOBAR PNEUMONIA [None]
  - LYMPHADENOPATHY [None]
  - MUCOSAL EROSION [None]
  - MUCOUS MEMBRANE DISORDER [None]
  - ORAL PAIN [None]
  - PAIN [None]
  - PHARYNGEAL ERYTHEMA [None]
  - PNEUMONIA BACTERIAL [None]
  - PURPURA [None]
  - PYREXIA [None]
  - RASH [None]
  - RASH GENERALISED [None]
  - RASH PAPULAR [None]
  - STEVENS-JOHNSON SYNDROME [None]
  - ULCERATIVE KERATITIS [None]
